FAERS Safety Report 9009435 (Version 2)
Quarter: 2013Q1

REPORT INFORMATION
  Report Type: Spontaneous
  Country: JP (occurrence: JP)
  Receive Date: 20130110
  Receipt Date: 20130212
  Transmission Date: 20140127
  Serious: Yes (Life-Threatening)
  Sender: FDA-Public Use
  Company Number: JP-ROCHE-1178460

PATIENT
  Age: 32 Year
  Sex: Female

DRUGS (2)
  1. ROCEPHIN [Suspect]
     Indication: APPENDICITIS
     Route: 041
     Dates: start: 20130107, end: 20130107
  2. PRIMPERAN (JAPAN) [Concomitant]
     Indication: APPENDICITIS
     Route: 041
     Dates: start: 20130107

REACTIONS (1)
  - Shock [Recovered/Resolved]
